FAERS Safety Report 22045802 (Version 2)
Quarter: 2023Q1

REPORT INFORMATION
  Report Type: Spontaneous
  Country: CN (occurrence: CN)
  Receive Date: 20230228
  Receipt Date: 20230309
  Transmission Date: 20230418
  Serious: Yes (Other)
  Sender: FDA-Public Use
  Company Number: CN-PFIZER INC-202300083359

PATIENT
  Age: 7 Decade

DRUGS (1)
  1. PAXLOVID [Suspect]
     Active Substance: NIRMATRELVIR\RITONAVIR
     Indication: COVID-19 treatment
     Dosage: UNK

REACTIONS (5)
  - Mental impairment [Unknown]
  - COVID-19 [Unknown]
  - Disease recurrence [Unknown]
  - B-lymphocyte abnormalities [Unknown]
  - Immune system disorder [Unknown]
